FAERS Safety Report 9300864 (Version 1)
Quarter: 2013Q2

REPORT INFORMATION
  Report Type: Spontaneous
  Country: GB (occurrence: GB)
  Receive Date: 20130521
  Receipt Date: 20130521
  Transmission Date: 20140414
  Serious: Yes (Other)
  Sender: FDA-Public Use
  Company Number: GB-PFIZER INC-2013149282

PATIENT
  Age: 39 Year
  Sex: Male

DRUGS (6)
  1. AZITHROMYCIN [Suspect]
     Indication: URETHRITIS
     Dosage: 1 G, SINGLE
  2. CLOZAPINE [Interacting]
     Indication: SCHIZOPHRENIA
     Dosage: 550 MG, DAILY
  3. CLOZAPINE [Interacting]
     Dosage: 400 MG, DAILY
  4. CLOZAPINE [Interacting]
     Dosage: 200 MG DAILY, DIVIDED DOSES
  5. VALPROATE SODIUM [Interacting]
     Indication: PROPHYLAXIS
     Dosage: 500 MG, 2X/DAY
  6. HYOSCINE HYDROBROMIDE [Concomitant]
     Indication: SALIVARY HYPERSECRETION
     Dosage: 300 UG, 2X/DAY

REACTIONS (3)
  - Drug interaction [Unknown]
  - Toxicity to various agents [Recovering/Resolving]
  - Condition aggravated [Recovering/Resolving]
